FAERS Safety Report 4571126-7 (Version None)
Quarter: 2005Q1

REPORT INFORMATION
  Report Type: 
  Country: None (occurrence: None)
  Receive Date: 20050202
  Receipt Date: 20050113
  Transmission Date: 20050727
  Serious: Yes (Hospitalization)
  Sender: FDA-Public Use
  Company Number: EWC050142268

PATIENT
  Age: 61 Year
  Sex: Female

DRUGS (7)
  1. FLUOXETINE [Suspect]
     Indication: DEPRESSION
     Dosage: 10 MG/1 DAY
     Dates: start: 20041123, end: 20041220
  2. FLUOXETIN MEPHA(FLUOXETINE HYDROCHLORIDE) [Concomitant]
  3. SEROQUEL [Concomitant]
  4. BENERVA (THIAMINE HYDROCHLORIDE) [Concomitant]
  5. BEROCCA CALCIUM, MAGNESIUM + ZINC [Concomitant]
  6. CELEBREX [Concomitant]
  7. ... [Concomitant]

REACTIONS (5)
  - GRAND MAL CONVULSION [None]
  - INFECTION [None]
  - LIVER DISORDER [None]
  - PAIN [None]
  - STATUS EPILEPTICUS [None]
